FAERS Safety Report 9526523 (Version 1)
Quarter: 2013Q3

REPORT INFORMATION
  Report Type: Spontaneous
  Country: DK (occurrence: DK)
  Receive Date: 20130916
  Receipt Date: 20130916
  Transmission Date: 20140515
  Serious: Yes (Congenital Anomaly)
  Sender: FDA-Public Use
  Company Number: DK-TEVA-431123ISR

PATIENT
  Age: 0 Year
  Sex: Male

DRUGS (1)
  1. ONDANSETRON [Suspect]
     Indication: NAUSEA
     Dosage: 12 MILLIGRAM DAILY;
     Route: 064
     Dates: start: 20110217

REACTIONS (4)
  - Atrioventricular septal defect [Unknown]
  - Exposure during pregnancy [Recovered/Resolved]
  - Cryptorchism [Unknown]
  - Hypospadias [Unknown]
